FAERS Safety Report 4685897-2 (Version None)
Quarter: 2005Q2

REPORT INFORMATION
  Report Type: 
  Country: None (occurrence: None)
  Receive Date: 20050607
  Receipt Date: 20050607
  Transmission Date: 20051028
  Serious: No
  Sender: FDA-Public Use
  Company Number: None

PATIENT
  Age: 62 Year
  Sex: Female

DRUGS (3)
  1. FENTANYL [Suspect]
     Indication: BACK PAIN
     Dosage: 1 PATCH EVERY 72 HOURS
     Dates: start: 20050401
  2. FENTANYL [Suspect]
     Indication: INTERVERTEBRAL DISC DISORDER
     Dosage: 1 PATCH EVERY 72 HOURS
     Dates: start: 20050401
  3. FENTANYL [Suspect]
     Indication: SPINAL CORD DISORDER
     Dosage: 1 PATCH EVERY 72 HOURS
     Dates: start: 20050401

REACTIONS (2)
  - DRUG EFFECT DECREASED [None]
  - PHARMACEUTICAL PRODUCT COMPLAINT [None]
